FAERS Safety Report 14484669 (Version 1)
Quarter: 2018Q1

REPORT INFORMATION
  Report Type: Spontaneous
  Country: GB (occurrence: GB)
  Receive Date: 20180205
  Receipt Date: 20180205
  Transmission Date: 20180509
  Serious: Yes (Death, Other)
  Sender: FDA-Public Use
  Company Number: GB-BAYER-2018-022011

PATIENT
  Age: 74 Year
  Sex: Female

DRUGS (12)
  1. MODAFINIL. [Concomitant]
     Active Substance: MODAFINIL
  2. PERINDOPRIL [Concomitant]
     Active Substance: PERINDOPRIL
  3. INSULIN [Concomitant]
     Active Substance: INSULIN NOS
  4. TACROLIMUS. [Concomitant]
     Active Substance: TACROLIMUS
     Indication: IMMUNOSUPPRESSION
  5. PREDNISOLONE. [Concomitant]
     Active Substance: PREDNISOLONE
     Indication: IMMUNOSUPPRESSION
     Dates: start: 2010, end: 2014
  6. IRBESARTAN. [Concomitant]
     Active Substance: IRBESARTAN
  7. DILTIAZEM. [Concomitant]
     Active Substance: DILTIAZEM
  8. PREDNISOLONE. [Concomitant]
     Active Substance: PREDNISOLONE
     Indication: IMMUNOSUPPRESSION
     Dosage: 30 MG, UNK
     Dates: start: 2014
  9. MYCOPHENOLATE MOFETIL. [Concomitant]
     Active Substance: MYCOPHENOLATE MOFETIL
     Indication: IMMUNOSUPPRESSION
  10. ACETYLSALICYLIC ACID({=100 MG) [Suspect]
     Active Substance: ASPIRIN
  11. SIMVASTATIN. [Concomitant]
     Active Substance: SIMVASTATIN
  12. URSODEOXYCHOLIC ACID [Concomitant]
     Active Substance: URSODIOL

REACTIONS (2)
  - Gastritis [Recovering/Resolving]
  - Iron deficiency anaemia [None]
